FAERS Safety Report 7374525-3 (Version None)
Quarter: 2011Q1

REPORT INFORMATION
  Report Type: 
  Country: None (occurrence: None)
  Receive Date: 20110325
  Receipt Date: 20100208
  Transmission Date: 20110831
  Serious: No
  Sender: FDA-Public Use
  Company Number: US-MYLANLABS-2010S1002248

PATIENT
  Sex: Female

DRUGS (4)
  1. FENTANYL-100 [Suspect]
     Indication: NECK PAIN
     Dosage: Q 72 HOURS
     Route: 062
     Dates: start: 20070101
  2. FENTANYL-100 [Suspect]
     Indication: BACK PAIN
     Dosage: Q 72 HOURS
     Route: 062
     Dates: start: 20070101
  3. XANAX [Concomitant]
  4. OXYCODON [Concomitant]

REACTIONS (4)
  - MUSCLE TWITCHING [None]
  - NECK PAIN [None]
  - BACK PAIN [None]
  - INCORRECT DRUG ADMINISTRATION DURATION [None]
